FAERS Safety Report 8174209-8 (Version None)
Quarter: 2012Q1

REPORT INFORMATION
  Report Type: 
  Country: None (occurrence: None)
  Receive Date: 20120224
  Receipt Date: 20120216
  Transmission Date: 20120608
  Serious: Yes (Disabling)
  Sender: FDA-Public Use
  Company Number: 2012MA002324

PATIENT
  Age: 31 Year
  Sex: Female

DRUGS (3)
  1. BUDESONIDE [Concomitant]
  2. METFORMIN HYDROCHLORIDE [Suspect]
     Dates: start: 20111212
  3. IPRATROPIUM BROMIDE [Concomitant]

REACTIONS (4)
  - NEUROLOGICAL SYMPTOM [None]
  - PARAESTHESIA [None]
  - ARTHRALGIA [None]
  - DISTURBANCE IN ATTENTION [None]
